FAERS Safety Report 4314374-3 (Version None)
Quarter: 2004Q1

REPORT INFORMATION
  Report Type: 
  Country: None (occurrence: None)
  Receive Date: 20040308
  Receipt Date: 20020205
  Transmission Date: 20041129
  Serious: Yes (Other)
  Sender: FDA-Public Use
  Company Number: 2002IC000061

PATIENT
  Sex: Female

DRUGS (2)
  1. DALMANE [Suspect]
     Indication: INSOMNIA
  2. PREMARIN [Concomitant]

REACTIONS (1)
  - CENTRAL NERVOUS SYSTEM INFLAMMATION [None]
